FAERS Safety Report 17955275 (Version 1)
Quarter: 2020Q2

REPORT INFORMATION
  Report Type: Spontaneous
  Country: US (occurrence: US)
  Receive Date: 20200629
  Receipt Date: 20200629
  Transmission Date: 20200714
  Serious: Yes (Other)
  Sender: FDA-Public Use
  Company Number: US-STRIDES ARCOLAB LIMITED-2020SP005171

PATIENT
  Age: 2 Year
  Sex: Female

DRUGS (1)
  1. ALBENDAZOLE. [Suspect]
     Active Substance: ALBENDAZOLE
     Indication: ENTEROBIASIS
     Dosage: UNK, 2 DOSES
     Route: 065

REACTIONS (1)
  - Drug ineffective for unapproved indication [Unknown]
